FAERS Safety Report 5516089-2 (Version None)
Quarter: 2007Q4

REPORT INFORMATION
  Report Type: 
  Country: None (occurrence: None)
  Receive Date: 20071114
  Receipt Date: 20061206
  Transmission Date: 20080405
  Serious: No
  Sender: FDA-Public Use
  Company Number: A0630380A

PATIENT
  Age: 66 Year
  Sex: Male

DRUGS (3)
  1. COMMIT [Suspect]
  2. COMMIT [Suspect]
  3. COMMIT [Suspect]

REACTIONS (2)
  - EUPHORIC MOOD [None]
  - INTENTIONAL DRUG MISUSE [None]
